FAERS Safety Report 9772987 (Version 1)
Quarter: 2013Q4

REPORT INFORMATION
  Report Type: Spontaneous
  Country: US (occurrence: None)
  Receive Date: 20131218
  Receipt Date: 20131218
  Transmission Date: 20140711
  Serious: Yes (Hospitalization)
  Sender: FDA-Public Use
  Company Number: None

PATIENT
  Age: 85 Year
  Sex: Male

DRUGS (2)
  1. CITALOPRAM [Suspect]
     Indication: DEMENTIA
     Route: 048
     Dates: start: 20131107, end: 20131114
  2. CITALOPRAM [Suspect]
     Indication: AGITATION
     Route: 048
     Dates: start: 20131107, end: 20131114

REACTIONS (3)
  - Sedation [None]
  - Investigation [None]
  - Mental status changes [None]
